FAERS Safety Report 10049136 (Version 3)
Quarter: 2014Q2

REPORT INFORMATION
  Report Type: Spontaneous
  Country: US (occurrence: US)
  Receive Date: 20140401
  Receipt Date: 20140415
  Transmission Date: 20141212
  Serious: Yes (Other)
  Sender: FDA-Public Use
  Company Number: US-AMGEN-USASP2014014806

PATIENT
  Age: 81 Year
  Sex: Female
  Weight: 45.35 kg

DRUGS (3)
  1. PROLIA [Suspect]
     Indication: OSTEOPOROSIS POSTMENOPAUSAL
     Dosage: UNK
     Route: 065
     Dates: start: 20131105
  2. LISINOPRIL HCTZ [Concomitant]
  3. CALCIUM WITH VITAMIN D             /00944201/ [Concomitant]

REACTIONS (6)
  - Rash pruritic [Recovering/Resolving]
  - Drug eruption [Unknown]
  - Pruritus generalised [Not Recovered/Not Resolved]
  - Excoriation [Not Recovered/Not Resolved]
  - Rash maculo-papular [Not Recovered/Not Resolved]
  - Discomfort [Not Recovered/Not Resolved]
